FAERS Safety Report 6532101-6 (Version None)
Quarter: 2010Q1

REPORT INFORMATION
  Report Type: 
  Country: None (occurrence: None)
  Receive Date: 20100108
  Receipt Date: 20091230
  Transmission Date: 20100710
  Serious: Yes (Life-Threatening, Hospitalization)
  Sender: FDA-Public Use
  Company Number: FR-GENENTECH-294834

PATIENT
  Sex: Female

DRUGS (9)
  1. MABTHERA [Suspect]
     Indication: RHEUMATOID ARTHRITIS
     Dosage: 1 G, X2
     Route: 042
     Dates: start: 20061101, end: 20090801
  2. CORTANCYL [Concomitant]
     Indication: DRUG USE FOR UNKNOWN INDICATION
  3. TRIATEC [Concomitant]
     Indication: DRUG USE FOR UNKNOWN INDICATION
  4. XANAX [Concomitant]
     Indication: DRUG USE FOR UNKNOWN INDICATION
  5. METFORMIN [Concomitant]
     Indication: DRUG USE FOR UNKNOWN INDICATION
  6. NOVOMIX 30 [Concomitant]
     Indication: DRUG USE FOR UNKNOWN INDICATION
  7. ZOMETA [Concomitant]
     Indication: DRUG USE FOR UNKNOWN INDICATION
  8. ROCEPHIN [Concomitant]
     Indication: CHOLECYSTITIS
  9. FLAGYL [Concomitant]
     Indication: CHOLECYSTITIS

REACTIONS (3)
  - CHOLECYSTITIS [None]
  - PANCREATIC CARCINOMA [None]
  - PANCREATITIS ACUTE [None]
